FAERS Safety Report 10751926 (Version 1)
Quarter: 2015Q1

REPORT INFORMATION
  Report Type: Spontaneous
  Country: US (occurrence: US)
  Receive Date: 20150130
  Receipt Date: 20150130
  Transmission Date: 20150721
  Serious: No
  Sender: FDA-Public Use
  Company Number: US-ENDO PHARMACEUTICALS INC.-FORT20140188

PATIENT
  Age: 54 Year
  Sex: Female

DRUGS (1)
  1. FORTESTA [Suspect]
     Active Substance: TESTOSTERONE
     Indication: EXPOSURE VIA DIRECT CONTACT
     Dosage: N/A
     Dates: start: 2014

REACTIONS (2)
  - Exposure via partner [Unknown]
  - Skin reaction [Unknown]

NARRATIVE: CASE EVENT DATE: 2014
